FAERS Safety Report 17085272 (Version 1)
Quarter: 2019Q4

REPORT INFORMATION
  Report Type: Spontaneous
  Country: US (occurrence: US)
  Receive Date: 20191127
  Receipt Date: 20191127
  Transmission Date: 20200122
  Serious: No
  Sender: FDA-Public Use
  Company Number: US-GLAXOSMITHKLINE-US2019209219

PATIENT
  Age: 45 Year
  Sex: Male

DRUGS (1)
  1. LAMISIL AT CONTINUOUS SPRAY [Suspect]
     Active Substance: TERBINAFINE HYDROCHLORIDE
     Indication: TINEA CRURIS
     Dosage: UNK
     Dates: start: 20191106, end: 20191110

REACTIONS (4)
  - Erythema [Unknown]
  - Swelling [Unknown]
  - Nervousness [Unknown]
  - Discomfort [Unknown]

NARRATIVE: CASE EVENT DATE: 20191106
